FAERS Safety Report 10271683 (Version 1)
Quarter: 2014Q3

REPORT INFORMATION
  Report Type: Spontaneous
  Country: US (occurrence: US)
  Receive Date: 20140701
  Receipt Date: 20140701
  Transmission Date: 20150326
  Serious: No
  Sender: FDA-Public Use
  Company Number: US-SA-2013SA122751

PATIENT
  Age: 13 Year
  Sex: Female
  Weight: 45.3 kg

DRUGS (1)
  1. CEREZYME [Suspect]
     Active Substance: IMIGLUCERASE
     Indication: GAUCHER^S DISEASE
     Dosage: DOSE:61.8 UNIT(S)/KILOGRAM BODYWEIGHT
     Route: 042
     Dates: start: 20131030

REACTIONS (4)
  - Sneezing [Unknown]
  - Tachycardia [Unknown]
  - Nasal congestion [Unknown]
  - Oropharyngeal pain [Unknown]

NARRATIVE: CASE EVENT DATE: 20131118
